FAERS Safety Report 11886396 (Version 2)
Quarter: 2016Q1

REPORT INFORMATION
  Report Type: Spontaneous
  Country: PL (occurrence: PL)
  Receive Date: 20160104
  Receipt Date: 20160204
  Transmission Date: 20160526
  Serious: Yes (Life-Threatening, Hospitalization, Disabling)
  Sender: FDA-Public Use
  Company Number: PL-PFIZER INC-2015408040

PATIENT
  Age: 65 Year
  Sex: Male
  Weight: 89 kg

DRUGS (8)
  1. SUTENT [Suspect]
     Active Substance: SUNITINIB MALATE
     Dosage: 50 MG
     Route: 048
     Dates: start: 201509
  2. SUTENT [Suspect]
     Active Substance: SUNITINIB MALATE
     Dosage: 37.5 MG/24H (DAILY) FOR 4 WEEKS, 2 WEEKS BREAK
  3. METFORMAX [Concomitant]
     Active Substance: METFORMIN HYDROCHLORIDE
     Dosage: 1000 UNK, UNK
  4. SORTIS [Concomitant]
     Active Substance: ATORVASTATIN
     Dosage: 10 UNK, UNK
  5. NEBICARD [Concomitant]
     Active Substance: NEBIVOLOL HYDROCHLORIDE
     Dosage: 5 UNK, UNK
  6. GLIBETIC [Concomitant]
     Dosage: 2 UNK, UNK
  7. POLOCARD [Concomitant]
     Active Substance: ASPIRIN
     Dosage: 75 UNK, UNK
  8. SUTENT [Suspect]
     Active Substance: SUNITINIB MALATE
     Indication: METASTATIC RENAL CELL CARCINOMA
     Dosage: 50 MG FOR 28 DAYS, BREAK FOR 14 DAYS
     Route: 048
     Dates: start: 20150812, end: 20150923

REACTIONS (5)
  - Thrombosis [Unknown]
  - Peripheral arterial occlusive disease [Unknown]
  - Ischaemia [Recovered/Resolved with Sequelae]
  - Condition aggravated [Unknown]
  - Dysaesthesia [Recovered/Resolved]

NARRATIVE: CASE EVENT DATE: 201511
